FAERS Safety Report 23784576 (Version 2)
Quarter: 2024Q2

REPORT INFORMATION
  Report Type: Spontaneous
  Country: US (occurrence: US)
  Receive Date: 20240425
  Receipt Date: 20240517
  Transmission Date: 20240716
  Serious: No
  Sender: FDA-Public Use
  Company Number: US-Blueprint Medicines Corporation-3248

PATIENT
  Sex: Female

DRUGS (2)
  1. AYVAKIT [Suspect]
     Active Substance: AVAPRITINIB
     Indication: Systemic mastocytosis
     Route: 065
     Dates: start: 20230124
  2. OJJAARA [Concomitant]
     Active Substance: MOMELOTINIB DIHYDROCHLORIDE MONOHYDRATE
     Indication: Systemic mastocytosis
     Route: 048
     Dates: start: 20231120

REACTIONS (6)
  - Nausea [Unknown]
  - Eye oedema [Unknown]
  - Eye swelling [Unknown]
  - Thought blocking [Unknown]
  - Madarosis [Unknown]
  - Eye discharge [Unknown]
